FAERS Safety Report 7597115-6 (Version None)
Quarter: 2011Q3

REPORT INFORMATION
  Report Type: 
  Country: None (occurrence: None)
  Receive Date: 20110708
  Receipt Date: 20110706
  Transmission Date: 20111222
  Serious: No
  Sender: FDA-Public Use
  Company Number: US-PFIZER INC-2007007394

PATIENT
  Sex: Female
  Weight: 77.098 kg

DRUGS (8)
  1. CHANTIX [Suspect]
     Dosage: 0.5 MG, 2X/DAY
     Route: 048
  2. CHANTIX [Suspect]
     Dosage: UNK
     Route: 048
     Dates: end: 20110401
  3. CHANTIX [Suspect]
     Indication: SMOKING CESSATION THERAPY
     Dosage: 0.5 MG, 1X/DAY
     Route: 048
     Dates: start: 20061201
  4. CRESTOR [Concomitant]
     Indication: BLOOD CHOLESTEROL ABNORMAL
     Dosage: 10 MG, DAILY
  5. CHANTIX [Suspect]
     Dosage: 1 MG, 2X/DAY
     Route: 048
  6. CHANTIX [Suspect]
     Dosage: UNK
     Route: 048
  7. CHANTIX [Suspect]
     Dosage: 0.5 MG, DAILY
     Route: 048
     Dates: start: 20101101
  8. ESTRADIOL [Concomitant]
     Dosage: UNK

REACTIONS (5)
  - HYPERSENSITIVITY [None]
  - OEDEMA PERIPHERAL [None]
  - DRUG INEFFECTIVE [None]
  - PAIN IN EXTREMITY [None]
  - MUSCLE STRAIN [None]
